FAERS Safety Report 14763363 (Version 1)
Quarter: 2018Q2

REPORT INFORMATION
  Report Type: Spontaneous
  Country: US (occurrence: US)
  Receive Date: 20180416
  Receipt Date: 20180416
  Transmission Date: 20180711
  Serious: No
  Sender: FDA-Public Use
  Company Number: US-BAYER-2018-072158

PATIENT
  Age: 78 Year
  Sex: Female
  Weight: 87.98 kg

DRUGS (2)
  1. ENSURE [MINERALS NOS,VITAMINS NOS] [Concomitant]
  2. MIRALAX [Suspect]
     Active Substance: POLYETHYLENE GLYCOL 3350
     Indication: GASTROINTESTINAL DISORDER
     Dosage: ;1 HALF CAPFUL TWICE PER DAY DOSE
     Route: 048

REACTIONS (5)
  - Underdose [Unknown]
  - Product prescribing issue [Unknown]
  - Back pain [Not Recovered/Not Resolved]
  - Product use issue [Unknown]
  - Incorrect drug administration duration [Unknown]
